FAERS Safety Report 17906357 (Version 1)
Quarter: 2020Q2

REPORT INFORMATION
  Report Type: Spontaneous
  Country: US (occurrence: US)
  Receive Date: 20200616
  Receipt Date: 20200616
  Transmission Date: 20200714
  Serious: No
  Sender: FDA-Public Use
  Company Number: US-ROCHE-2365849

PATIENT
  Sex: Female

DRUGS (3)
  1. METHOTREXATE. [Concomitant]
     Active Substance: METHOTREXATE
     Route: 065
     Dates: start: 20170323
  2. ACTEMRA [Suspect]
     Active Substance: TOCILIZUMAB
     Indication: RHEUMATOID ARTHRITIS
     Dosage: 0.9 ML
     Route: 058
     Dates: start: 20170427, end: 20190101
  3. DEXILANT [Concomitant]
     Active Substance: DEXLANSOPRAZOLE
     Route: 065
     Dates: start: 20170322

REACTIONS (2)
  - No adverse event [Unknown]
  - Drug ineffective [Unknown]
